FAERS Safety Report 9386056 (Version 1)
Quarter: 2013Q3

REPORT INFORMATION
  Report Type: Spontaneous
  Country: GB (occurrence: GB)
  Receive Date: 20130706
  Receipt Date: 20130706
  Transmission Date: 20140515
  Serious: Yes (Hospitalization)
  Sender: FDA-Public Use
  Company Number: GB-ABBOTT-13X-167-1115177-00

PATIENT
  Age: 63 Year
  Sex: Male

DRUGS (2)
  1. EPILIM CHRONO [Suspect]
     Indication: EPILEPSY
     Dosage: 600 MILLIGRAM(S) ;TWICE A DAY, EXTENDED RELEASE
     Route: 048
  2. EPILIM CHRONO [Suspect]
     Dosage: 600 MILLIGRAM(S) ;TWICE A DAY, EXTENDED RELEASE
     Route: 048

REACTIONS (3)
  - Fall [Unknown]
  - Convulsion [Unknown]
  - Drug dose omission [Unknown]
